FAERS Safety Report 10368270 (Version 1)
Quarter: 2014Q3

REPORT INFORMATION
  Report Type: Spontaneous
  Country: US (occurrence: US)
  Receive Date: 20140807
  Receipt Date: 20140807
  Transmission Date: 20150326
  Serious: No
  Sender: FDA-Public Use
  Company Number: US-PFIZER INC-2014216527

PATIENT
  Age: 42 Year
  Sex: Male
  Weight: 115.65 kg

DRUGS (2)
  1. PRISTIQ EXTENDED RELEASE [Suspect]
     Active Substance: DESVENLAFAXINE SUCCINATE
     Indication: ANXIETY
  2. PRISTIQ EXTENDED RELEASE [Suspect]
     Active Substance: DESVENLAFAXINE SUCCINATE
     Indication: PANIC ATTACK
     Dosage: 50 MG, UNK
     Dates: start: 201406

REACTIONS (3)
  - Libido increased [Unknown]
  - Appetite disorder [Unknown]
  - Hypohidrosis [Unknown]

NARRATIVE: CASE EVENT DATE: 2014
